FAERS Safety Report 8574280-5 (Version None)
Quarter: 2012Q3

REPORT INFORMATION
  Report Type: 
  Country: None (occurrence: None)
  Receive Date: 20120806
  Receipt Date: 20120723
  Transmission Date: 20120928
  Serious: Yes (Other)
  Sender: FDA-Public Use
  Company Number: US-009507513-1207USA011251

PATIENT

DRUGS (4)
  1. ZOCOR [Suspect]
  2. ATACAND [Suspect]
     Route: 048
  3. CRESTOR [Suspect]
     Dosage: UNK
     Route: 048
  4. COZAAR [Suspect]

REACTIONS (9)
  - EYELID PTOSIS [None]
  - PHOTOPHOBIA [None]
  - URINE ABNORMALITY [None]
  - MUSCLE SPASMS [None]
  - DIZZINESS [None]
  - HEADACHE [None]
  - DIABETES MELLITUS [None]
  - FATIGUE [None]
  - VISUAL IMPAIRMENT [None]
